FAERS Safety Report 5094878-9 (Version None)
Quarter: 2006Q3

REPORT INFORMATION
  Report Type: 
  Country: None (occurrence: None)
  Receive Date: 20060901
  Receipt Date: 20060828
  Transmission Date: 20061208
  Serious: Yes (Life-Threatening, Hospitalization)
  Sender: FDA-Public Use
  Company Number: PHBS2006FR13032

PATIENT
  Age: 26 Year
  Sex: Male

DRUGS (2)
  1. CARBAMAZEPINE [Suspect]
     Dosage: 32 G, ONCE/SINGLE
     Route: 048
  2. INSULIN [Suspect]
     Dosage: 600 IU, ONCE/SINGLE
     Route: 058

REACTIONS (37)
  - BLOOD CREATININE INCREASED [None]
  - BLOOD GLUCOSE DECREASED [None]
  - BLOOD LACTIC ACID INCREASED [None]
  - BLOOD POTASSIUM DECREASED [None]
  - BLOOD PRESSURE DECREASED [None]
  - BUNDLE BRANCH BLOCK RIGHT [None]
  - CARDIAC FAILURE [None]
  - CARDIAC INDEX DECREASED [None]
  - CARDIOGENIC SHOCK [None]
  - COMA [None]
  - DRUG LEVEL INCREASED [None]
  - DRUG TOXICITY [None]
  - ELECTROCARDIOGRAM ST SEGMENT ELEVATION [None]
  - ELECTROENCEPHALOGRAM ABNORMAL [None]
  - ELECTROMECHANICAL DISSOCIATION [None]
  - GLASGOW COMA SCALE ABNORMAL [None]
  - HEART RATE INCREASED [None]
  - HYPOREFLEXIA [None]
  - HYPOTENSION [None]
  - HYPOTHERMIA [None]
  - HYPOTONIA [None]
  - HYPOVOLAEMIA [None]
  - HYPOXIA [None]
  - INTENTIONAL OVERDOSE [None]
  - INTUBATION [None]
  - LUNG INFECTION PSEUDOMONAL [None]
  - OEDEMA PERIPHERAL [None]
  - OLIGURIA [None]
  - PROTHROMBIN TIME SHORTENED [None]
  - PULMONARY ARTERIAL WEDGE PRESSURE DECREASED [None]
  - PULMONARY OEDEMA [None]
  - RENAL FAILURE ACUTE [None]
  - SUICIDE ATTEMPT [None]
  - VASCULAR RESISTANCE SYSTEMIC INCREASED [None]
  - VENA CAVA THROMBOSIS [None]
  - VENTRICULAR DYSFUNCTION [None]
  - VENTRICULAR HYPOKINESIA [None]
